FAERS Safety Report 4597235-4 (Version None)
Quarter: 2005Q1

REPORT INFORMATION
  Report Type: 
  Country: None (occurrence: None)
  Receive Date: 20050301
  Receipt Date: 20050217
  Transmission Date: 20050727
  Serious: Yes (Hospitalization)
  Sender: FDA-Public Use
  Company Number: 2005PK00304

PATIENT
  Age: 78 Year
  Sex: Female
  Weight: 74 kg

DRUGS (2)
  1. NOLVADEX [Suspect]
     Indication: BREAST CANCER
     Dosage: 20 MG DAILY PO
     Route: 048
     Dates: start: 20020220
  2. THROMBO ASS [Concomitant]

REACTIONS (5)
  - CERVIX DISORDER [None]
  - ENDOMETRIAL ATROPHY [None]
  - ENDOMETRIAL DISORDER [None]
  - HYDROMETRA [None]
  - ULTRASOUND SCAN ABNORMAL [None]
